FAERS Safety Report 8091691-5 (Version None)
Quarter: 2012Q1

REPORT INFORMATION
  Report Type: 
  Country: None (occurrence: None)
  Receive Date: 20120131
  Receipt Date: 20120123
  Transmission Date: 20120608
  Serious: Yes (Hospitalization, Other)
  Sender: FDA-Public Use
  Company Number: US-PFIZER INC-2012020611

PATIENT
  Sex: Male

DRUGS (20)
  1. ATIVAN [Concomitant]
     Indication: CONVULSION
     Dosage: 1 MG, UNK
     Route: 042
     Dates: start: 20040816
  2. VERSED [Concomitant]
     Indication: CONVULSION
     Dosage: 0.3 MG, SINGLE
     Route: 042
     Dates: start: 20040819
  3. FOSPHENYTOIN [Concomitant]
     Dosage: 40 MG, 2X/DAY
  4. PHENYTOIN [Concomitant]
     Indication: CONVULSION
     Dosage: 40 MG, 2X/DAY
     Route: 048
     Dates: start: 20040819, end: 20040831
  5. TEGRETOL [Concomitant]
     Indication: CONVULSION
     Dosage: UNK
  6. DILANTIN-125 [Suspect]
     Indication: CONVULSION
     Dosage: 75 MG (3ML), 2X/DAY
     Route: 048
     Dates: start: 20040825, end: 20040831
  7. RANITIDINE [Concomitant]
     Dosage: 10 MG, 3X/DAY
     Route: 042
     Dates: start: 20040819
  8. NYSTATIN [Concomitant]
     Dosage: UNK
     Dates: start: 20040819
  9. DEPAKOTE [Concomitant]
     Indication: CONVULSION
     Dosage: UNK
     Route: 048
     Dates: start: 20040817
  10. DIAZEPAM [Concomitant]
     Indication: CONVULSION
     Dosage: 7.5 MG, UNK
     Route: 054
     Dates: start: 20040825
  11. TOPAMAX [Concomitant]
     Indication: CONVULSION
     Dosage: 25 MG, 2X/DAY
     Dates: start: 20040816
  12. VALPROIC ACID [Concomitant]
     Indication: CONVULSION
     Dosage: 350 MG, SINGLE
     Route: 042
     Dates: start: 20040817
  13. FOSPHENYTOIN [Concomitant]
     Indication: CONVULSION
     Dosage: 260 MG, UNK
     Route: 042
     Dates: start: 20040819
  14. VALPROIC ACID [Concomitant]
     Dosage: 70 MG, 3X/DAY
     Route: 048
  15. HEPLOK [Concomitant]
     Dosage: UNK
     Dates: start: 20040819
  16. PHENOBARBITAL [Concomitant]
     Indication: CONVULSION
     Dosage: 70 MG, UNK
     Route: 042
     Dates: start: 20040816, end: 20040831
  17. KEPPRA [Concomitant]
     Indication: CONVULSION
     Dosage: 125 MG, 2X/DAY
     Dates: start: 20040810, end: 20040814
  18. LIDOCAINE [Concomitant]
     Dosage: 1.4 MG, SINGLE
     Route: 042
     Dates: start: 20040818
  19. CARNITOR [Concomitant]
     Dosage: 140 MG, 2X/DAY
     Route: 048
     Dates: start: 20040818
  20. HYDROCORTISONE [Concomitant]
     Dosage: 1 %, UNK
     Route: 061
     Dates: start: 20040822

REACTIONS (1)
  - STEVENS-JOHNSON SYNDROME [None]
